FAERS Safety Report 9445639 (Version 3)
Quarter: 2014Q2

REPORT INFORMATION
  Report Type: Report from Study
  Country: US (occurrence: US)
  Receive Date: 20130807
  Receipt Date: 20140404
  Transmission Date: 20141212
  Serious: Yes (Hospitalization)
  Sender: FDA-Public Use
  Company Number: US-PURDUE-USA-2013-0105144

PATIENT
  Age: 52 Year
  Sex: Female

DRUGS (2)
  1. OXY CR TAB [Suspect]
     Indication: PAIN
     Dosage: 10 MG, BID
     Route: 048
     Dates: start: 20130708, end: 20130724
  2. OXYCODONE HCL IR CAPSULES [Concomitant]
     Indication: BREAKTHROUGH PAIN
     Dosage: 5 MG, PRN
     Route: 048
     Dates: start: 20130708, end: 20130724

REACTIONS (1)
  - Herpes zoster [Recovered/Resolved]
